FAERS Safety Report 18925107 (Version 2)
Quarter: 2021Q1

REPORT INFORMATION
  Report Type: Spontaneous
  Country: DE (occurrence: DE)
  Receive Date: 20210223
  Receipt Date: 20210305
  Transmission Date: 20210420
  Serious: Yes (Hospitalization, Other)
  Sender: FDA-Public Use
  Company Number: DE-HRARD-2020000164

PATIENT
  Sex: Female

DRUGS (5)
  1. LYSODREN [Suspect]
     Active Substance: MITOTANE
     Indication: ADRENOCORTICAL CARCINOMA
     Dosage: UNSPECIFIED DOSE AFTER 01?WEEK INTERRUPTION IN OCT 2020
     Dates: start: 202010, end: 202011
  2. LYSODREN [Suspect]
     Active Substance: MITOTANE
     Indication: ADRENOCORTICAL CARCINOMA
     Dosage: POSOLOGY REPORTED AS 5?4?5 TABLETS
     Dates: start: 20190830, end: 20191022
  3. LYSODREN [Suspect]
     Active Substance: MITOTANE
     Indication: ADRENOCORTICAL CARCINOMA
     Dates: start: 20190513
  4. LYSODREN [Suspect]
     Active Substance: MITOTANE
     Indication: ADRENOCORTICAL CARCINOMA
     Dosage: POSOLOGY REPORTED AS 3?2?2 TABLETS, STEP?BY?STEP DOSAGE REDUCTION FROM 23 OCT 2019
     Dates: start: 20200206, end: 202010
  5. LYSODREN [Suspect]
     Active Substance: MITOTANE
     Indication: ADRENOCORTICAL CARCINOMA
     Dosage: POSOLOGY REPORTED AS 4?4?4 TABLETS
     Dates: end: 20190829

REACTIONS (15)
  - Hypothyroidism [Unknown]
  - Burning sensation [Unknown]
  - Weight decreased [Unknown]
  - Diarrhoea [Recovered/Resolved]
  - Hair growth abnormal [Unknown]
  - Haemorrhoids thrombosed [Recovered/Resolved]
  - Amenorrhoea [Unknown]
  - Decreased appetite [Unknown]
  - Helicobacter gastritis [Unknown]
  - Somnolence [Unknown]
  - Paraesthesia [Unknown]
  - Off label use [Recovered/Resolved]
  - Staphylococcal bacteraemia [Unknown]
  - Herpes simplex reactivation [Unknown]
  - Ovarian cyst [Unknown]

NARRATIVE: CASE EVENT DATE: 2019
